FAERS Safety Report 13060336 (Version 3)
Quarter: 2023Q2

REPORT INFORMATION
  Report Type: Spontaneous
  Country: IT (occurrence: IT)
  Receive Date: 20161223
  Receipt Date: 20230601
  Transmission Date: 20230722
  Serious: Yes (Disabling, Other)
  Sender: FDA-Public Use
  Company Number: IT-SA-2016SA230717

PATIENT
  Age: 1 Day
  Sex: Female

DRUGS (4)
  1. LEMTRADA [Suspect]
     Active Substance: ALEMTUZUMAB
     Indication: Foetal exposure during pregnancy
     Dosage: 12 MG,QD
     Route: 064
     Dates: start: 20160118, end: 20160122
  2. ASPIRIN [Suspect]
     Active Substance: ASPIRIN
     Indication: Foetal exposure during pregnancy
     Dosage: UNK
     Route: 064
  3. SOLU-MEDROL [Suspect]
     Active Substance: METHYLPREDNISOLONE SODIUM SUCCINATE
     Indication: Foetal exposure during pregnancy
     Dosage: UNK
     Route: 064
  4. CORTISONE [Suspect]
     Active Substance: CORTISONE
     Indication: Foetal exposure during pregnancy
     Dosage: UNK
     Route: 064

REACTIONS (11)
  - Congenital cytomegalovirus infection [Unknown]
  - Maternal exposure before pregnancy [Unknown]
  - Small for dates baby [Unknown]
  - Microencephaly [Unknown]
  - Hypertonia [Unknown]
  - Intraventricular haemorrhage neonatal [Unknown]
  - Foetal growth restriction [Unknown]
  - Microcephaly [Unknown]
  - Cerebral ventricle dilatation [Unknown]
  - Cerebral calcification [Unknown]
  - Cerebral cyst [Unknown]

NARRATIVE: CASE EVENT DATE: 20160101
